FAERS Safety Report 6839950-5 (Version None)
Quarter: 2010Q3

REPORT INFORMATION
  Report Type: 
  Country: None (occurrence: None)
  Receive Date: 20100714
  Receipt Date: 20100705
  Transmission Date: 20110219
  Serious: Yes (Other)
  Sender: FDA-Public Use
  Company Number: JP-ABBOTT-10P-087-0655900-00

PATIENT
  Age: 64 Year
  Sex: Male
  Weight: 47 kg

DRUGS (5)
  1. KLARICID [Suspect]
     Indication: PRODUCT USED FOR UNKNOWN INDICATION
  2. BEPRIDIL [Suspect]
     Indication: PRODUCT USED FOR UNKNOWN INDICATION
  3. DIGOXIN [Concomitant]
     Indication: PRODUCT USED FOR UNKNOWN INDICATION
  4. BETA-BLOCKER [Concomitant]
     Indication: PRODUCT USED FOR UNKNOWN INDICATION
  5. ANGIOTENSIN CONVERTING ENZYME INHIBITOR [Concomitant]
     Indication: PRODUCT USED FOR UNKNOWN INDICATION

REACTIONS (2)
  - SYNCOPE [None]
  - TORSADE DE POINTES [None]
